FAERS Safety Report 12990688 (Version 1)
Quarter: 2016Q4

REPORT INFORMATION
  Report Type: Spontaneous
  Country: PT (occurrence: PT)
  Receive Date: 20161201
  Receipt Date: 20161201
  Transmission Date: 20170207
  Serious: Yes (Other)
  Sender: FDA-Public Use
  Company Number: PT-JNJFOC-20161126728

PATIENT

DRUGS (2)
  1. GOLIMUMAB [Suspect]
     Active Substance: GOLIMUMAB
     Indication: SPONDYLITIS
     Route: 058
  2. INFLIXIMAB, RECOMBINANT [Suspect]
     Active Substance: INFLIXIMAB
     Indication: SPONDYLITIS
     Route: 042

REACTIONS (13)
  - Interstitial lung disease [Unknown]
  - Tuberculosis [Unknown]
  - Carcinoid tumour [Unknown]
  - Hepatic function abnormal [Unknown]
  - Psoriasis [Unknown]
  - Blood disorder [Unknown]
  - Endometrial cancer [Unknown]
  - Infection [Unknown]
  - Drug ineffective [Unknown]
  - Adverse event [Unknown]
  - Prostate cancer [Unknown]
  - Breast cancer [Unknown]
  - Hypersensitivity [Unknown]
